FAERS Safety Report 5157775-6 (Version None)
Quarter: 2006Q4

REPORT INFORMATION
  Report Type: 
  Country: None (occurrence: None)
  Receive Date: 20061121
  Receipt Date: 20061121
  Transmission Date: 20070319
  Serious: Yes (Other)
  Sender: FDA-Public Use
  Company Number: None

PATIENT
  Age: 12 Year
  Sex: Male
  Weight: 45.3597 kg

DRUGS (2)
  1. TAMIFLU [Suspect]
  2. STRATTERA [Suspect]

REACTIONS (3)
  - ELECTROENCEPHALOGRAM ABNORMAL [None]
  - NERVOUS SYSTEM DISORDER [None]
  - STARING [None]
